FAERS Safety Report 22089100 (Version 1)
Quarter: 2023Q1

REPORT INFORMATION
  Report Type: Spontaneous
  Country: US (occurrence: None)
  Receive Date: 20230312
  Receipt Date: 20230312
  Transmission Date: 20230418
  Serious: Yes (Disabling, Other)
  Sender: FDA-Public Use
  Company Number: None

PATIENT
  Age: 43 Year
  Sex: Male
  Weight: 74.25 kg

DRUGS (3)
  1. CERTAIN DRI ROLL-ON [Suspect]
     Active Substance: ALUMINUM CHLORIDE
     Indication: Hyperhidrosis
     Dates: start: 20230301, end: 20230311
  2. VITAMIN B12 [Concomitant]
     Active Substance: CYANOCOBALAMIN
  3. VITAMIN D [Concomitant]
     Active Substance: VITAMIN D NOS

REACTIONS (5)
  - Pain in extremity [None]
  - Arthralgia [None]
  - Asthenia [None]
  - Therapy interrupted [None]
  - Sensory disturbance [None]

NARRATIVE: CASE EVENT DATE: 20230301
